FAERS Safety Report 15467516 (Version 1)
Quarter: 2018Q4

REPORT INFORMATION
  Report Type: Report from Study
  Country: US (occurrence: US)
  Receive Date: 20181005
  Receipt Date: 20181005
  Transmission Date: 20190204
  Serious: Yes (Other)
  Sender: FDA-Public Use
  Company Number: US-ROCHE-2189944

PATIENT
  Age: 46 Year
  Sex: Female
  Weight: 65.38 kg

DRUGS (7)
  1. RITUXAN [Suspect]
     Active Substance: RITUXIMAB
     Indication: FATIGUE
     Dosage: SUBSEQUENT DOSE RECEIVED ON 08/MAY/2018.
     Route: 042
  2. RITUXAN [Suspect]
     Active Substance: RITUXIMAB
     Dosage: SUBSEQUENT DOSE RECEIVED ON 08/MAY/2018.
     Route: 042
     Dates: start: 20171005
  3. PHENERGAN [Concomitant]
     Active Substance: PROMETHAZINE HYDROCHLORIDE
     Dosage: 1 PER INFUSION
     Route: 048
     Dates: start: 20171005
  4. DIPHENHYDRAMINE. [Concomitant]
     Active Substance: DIPHENHYDRAMINE
     Dosage: 1 PER INFUSION
     Route: 048
     Dates: start: 20171005
  5. ZOFRAN [Concomitant]
     Active Substance: ONDANSETRON HYDROCHLORIDE
     Indication: NAUSEA
     Dosage: 1 PER INFUSION
     Route: 048
     Dates: start: 20171005
  6. ZYRTEC [Concomitant]
     Active Substance: CETIRIZINE HYDROCHLORIDE
     Route: 048
     Dates: start: 20171005
  7. IBUPROFEN. [Concomitant]
     Active Substance: IBUPROFEN
     Dosage: 2 PER INFUSION
     Route: 048
     Dates: start: 20171005

REACTIONS (5)
  - Drug intolerance [Unknown]
  - Off label use [Unknown]
  - Throat irritation [Recovered/Resolved]
  - Intentional product use issue [Unknown]
  - Muscular weakness [Recovered/Resolved]

NARRATIVE: CASE EVENT DATE: 20171005
